FAERS Safety Report 11913349 (Version 1)
Quarter: 2016Q1

REPORT INFORMATION
  Report Type: Spontaneous
  Country: US (occurrence: None)
  Receive Date: 20160112
  Receipt Date: 20160112
  Transmission Date: 20160526
  Serious: Yes (Other)
  Sender: FDA-Public Use
  Company Number: None

PATIENT
  Age: 34 Year
  Sex: Female
  Weight: 61.24 kg

DRUGS (1)
  1. MIRENA [Suspect]
     Active Substance: LEVONORGESTREL

REACTIONS (5)
  - Vulvovaginal rash [None]
  - Pain [None]
  - Vulvovaginal hypoaesthesia [None]
  - Hypoaesthesia [None]
  - Haemorrhage [None]

NARRATIVE: CASE EVENT DATE: 20160110
